FAERS Safety Report 10246385 (Version 1)
Quarter: 2014Q2

REPORT INFORMATION
  Report Type: Spontaneous
  Country: US (occurrence: US)
  Receive Date: 20140619
  Receipt Date: 20140619
  Transmission Date: 20141212
  Serious: No
  Sender: FDA-Public Use
  Company Number: US-PFIZER INC-2014164348

PATIENT
  Age: 45 Year
  Sex: Female
  Weight: 58.96 kg

DRUGS (1)
  1. ADVIL [Suspect]
     Indication: ARTHRALGIA
     Dosage: 400 MG (BY TAKING TWO CAPSULES OF 200 MG TOGETHER) , ONCE A DAY
     Route: 048
     Dates: end: 20140613

REACTIONS (3)
  - Wrong technique in drug usage process [Unknown]
  - Dysphagia [Unknown]
  - Hypoaesthesia oral [Recovered/Resolved]
